FAERS Safety Report 9174120 (Version 1)
Quarter: 2013Q1

REPORT INFORMATION
  Report Type: Spontaneous
  Country: US (occurrence: None)
  Receive Date: 20130314
  Receipt Date: 20130314
  Transmission Date: 20140127
  Serious: Yes (Hospitalization, Other)
  Sender: FDA-Public Use
  Company Number: A-12-063

PATIENT
  Age: 22 Year
  Sex: Female

DRUGS (5)
  1. ALBUTEROL [Suspect]
     Indication: DYSPNOEA
     Dosage: 0.25MG, 5 DOSES, 054
  2. ALBUTEROL [Suspect]
     Indication: ASTHMA
     Dosage: 0.25MG, 5 DOSES, 054
  3. FLUTICASONE/SALMETEROL 250/50 MCG [Concomitant]
  4. MONTELUKAST [Concomitant]
  5. PREDNISONE 60MG [Concomitant]

REACTIONS (2)
  - Lactic acidosis [None]
  - Respiratory distress [None]
